FAERS Safety Report 18459355 (Version 1)
Quarter: 2020Q4

REPORT INFORMATION
  Report Type: Spontaneous
  Country: US (occurrence: US)
  Receive Date: 20201103
  Receipt Date: 20201103
  Transmission Date: 20210114
  Serious: No
  Sender: FDA-Public Use
  Company Number: US-HORIZON-2020HZN00393

PATIENT
  Age: 63 Year
  Sex: Male

DRUGS (3)
  1. PENNSAID [Suspect]
     Active Substance: DICLOFENAC SODIUM
     Indication: NECK PAIN
  2. OXYCODONE [Concomitant]
     Active Substance: OXYCODONE
  3. TRAMADOL. [Concomitant]
     Active Substance: TRAMADOL

REACTIONS (2)
  - Off label use [Unknown]
  - Pain [Unknown]
